FAERS Safety Report 4380503-9 (Version None)
Quarter: 2004Q2

REPORT INFORMATION
  Report Type: 
  Country: None (occurrence: None)
  Receive Date: 20040614
  Receipt Date: 20040527
  Transmission Date: 20050107
  Serious: Yes (Hospitalization)
  Sender: FDA-Public Use
  Company Number: 198981

PATIENT
  Sex: Female
  Weight: 55.3388 kg

DRUGS (4)
  1. AVONEX [Suspect]
     Indication: MULTIPLE SCLEROSIS
     Dosage: 30 MCG QW IM
     Route: 030
     Dates: end: 20040101
  2. AVONEX [Suspect]
     Indication: MULTIPLE SCLEROSIS
     Dosage: 30 MCG QW IM
     Route: 030
     Dates: start: 20040101
  3. BACLOFEN [Concomitant]
  4. PROTONIX [Concomitant]

REACTIONS (11)
  - AMNESIA [None]
  - ANAEMIA [None]
  - CONFUSIONAL STATE [None]
  - DYSARTHRIA [None]
  - HEART RATE INCREASED [None]
  - HYPOTENSION [None]
  - INFLUENZA LIKE ILLNESS [None]
  - NEPHROLITHIASIS [None]
  - RESPIRATORY RATE INCREASED [None]
  - SEPSIS [None]
  - URINARY TRACT INFECTION [None]
